FAERS Safety Report 19400663 (Version 2)
Quarter: 2021Q2

REPORT INFORMATION
  Report Type: Spontaneous
  Country: JP (occurrence: JP)
  Receive Date: 20210610
  Receipt Date: 20210617
  Transmission Date: 20210717
  Serious: Yes (Hospitalization)
  Sender: FDA-Public Use
  Company Number: JP-DSJP-DSJ-2021-117133

PATIENT
  Age: 68 Year
  Sex: Male

DRUGS (4)
  1. LIXIANA OD TABLETS 60MG [Suspect]
     Active Substance: EDOXABAN TOSYLATE
     Dosage: 60 MG, QD
     Route: 048
     Dates: start: 20210423
  2. LIXIANA OD TABLETS 60MG [Suspect]
     Active Substance: EDOXABAN TOSYLATE
     Indication: ATRIAL FIBRILLATION
     Dosage: 30 MG, QD
     Route: 048
     Dates: start: 20190530, end: 20210422
  3. METILDIGOXIN [Concomitant]
     Active Substance: METILDIGOXIN
     Dosage: 0.05 MG, QD
     Route: 048
  4. BISOPROLOL FUMARATE. [Concomitant]
     Active Substance: BISOPROLOL FUMARATE
     Dosage: 5 MG, QD
     Route: 048

REACTIONS (1)
  - Embolic stroke [Unknown]

NARRATIVE: CASE EVENT DATE: 20210416
